FAERS Safety Report 24025956 (Version 1)
Quarter: 2024Q2

REPORT INFORMATION
  Report Type: Spontaneous
  Country: US (occurrence: US)
  Receive Date: 20240628
  Receipt Date: 20240628
  Transmission Date: 20240715
  Serious: No
  Sender: FDA-Public Use
  Company Number: US-AUROBINDO-AUR-APL-2023-080495

PATIENT
  Age: 98 Year
  Sex: Female
  Weight: 56.6 kg

DRUGS (1)
  1. AZELASTINE HYDROCHLORIDE [Suspect]
     Active Substance: AZELASTINE HYDROCHLORIDE
     Indication: Productive cough
     Dosage: UNK, (RIGHT SIDE OF THE NOSE 2-3 TIMES A DAY IN HER RIGHT NASAL PASSAGE)
     Route: 045

REACTIONS (1)
  - Ecchymosis [Unknown]

NARRATIVE: CASE EVENT DATE: 20231217
